FAERS Safety Report 5135065-5 (Version None)
Quarter: 2006Q4

REPORT INFORMATION
  Report Type: 
  Country: None (occurrence: None)
  Receive Date: 20060831
  Receipt Date: 20051227
  Transmission Date: 20070319
  Serious: Yes (Other)
  Sender: FDA-Public Use
  Company Number: 249629

PATIENT

DRUGS (1)
  1. NOVOLIN R [Suspect]
     Indication: BLOOD GLUCOSE INCREASED
     Dosage: 300 IU PER IV BAG, INTRAVENOUS
     Route: 042

REACTIONS (1)
  - BLOOD GLUCOSE INCREASED [None]
